FAERS Safety Report 6521375-3 (Version None)
Quarter: 2009Q4

REPORT INFORMATION
  Report Type: 
  Country: None (occurrence: None)
  Receive Date: 20091230
  Receipt Date: 20091218
  Transmission Date: 20100525
  Serious: Yes (Hospitalization)
  Sender: FDA-Public Use
  Company Number: DE-JNJFOC-20060801938

PATIENT
  Age: 6 Decade
  Sex: Female

DRUGS (21)
  1. REMICADE [Suspect]
     Route: 042
  2. REMICADE [Suspect]
     Route: 042
  3. REMICADE [Suspect]
     Route: 042
  4. REMICADE [Suspect]
     Route: 042
  5. REMICADE [Suspect]
     Route: 042
  6. REMICADE [Suspect]
     Route: 042
  7. REMICADE [Suspect]
     Route: 042
  8. REMICADE [Suspect]
     Route: 042
  9. REMICADE [Suspect]
     Route: 042
  10. REMICADE [Suspect]
     Indication: RHEUMATOID ARTHRITIS
     Route: 042
  11. METHOTREXATE [Suspect]
     Route: 065
  12. METHOTREXATE [Suspect]
     Indication: DRUG USE FOR UNKNOWN INDICATION
     Route: 065
  13. PREDNISOLONE [Concomitant]
     Route: 048
  14. PREDNISOLONE [Concomitant]
     Indication: DRUG USE FOR UNKNOWN INDICATION
     Route: 048
  15. OMEPRAZOLE [Concomitant]
     Indication: DRUG USE FOR UNKNOWN INDICATION
     Route: 048
  16. VITAMIN D [Concomitant]
     Route: 048
  17. CALCIUM [Concomitant]
     Route: 048
  18. ESTROGEN [Concomitant]
     Indication: DRUG USE FOR UNKNOWN INDICATION
  19. IBANDRONIC ACID [Concomitant]
  20. NOVALGIN [Concomitant]
  21. TILIDIN [Concomitant]

REACTIONS (9)
  - ACCIDENT [None]
  - GRAND MAL CONVULSION [None]
  - HYPOKALAEMIA [None]
  - HYPONATRAEMIA [None]
  - INAPPROPRIATE ANTIDIURETIC HORMONE SECRETION [None]
  - RENAL FAILURE [None]
  - RHABDOMYOLYSIS [None]
  - RIB FRACTURE [None]
  - SPINAL COMPRESSION FRACTURE [None]
